FAERS Safety Report 6647128-3 (Version None)
Quarter: 2010Q1

REPORT INFORMATION
  Report Type: 
  Country: None (occurrence: None)
  Receive Date: 20100323
  Receipt Date: 20100311
  Transmission Date: 20100710
  Serious: Yes (Disabling, Other)
  Sender: FDA-Public Use
  Company Number: PHEH2005US01858

PATIENT
  Sex: Female
  Weight: 63.492 kg

DRUGS (47)
  1. ZOMETA [Suspect]
     Indication: METASTASES TO BONE
     Dosage: 4 MG EVERY 3-4 WEEKS
     Dates: start: 20040901, end: 20050101
  2. AREDIA [Suspect]
     Indication: METASTASES TO BONE
     Dosage: 60 MG Q3MONTHS
     Dates: start: 20050501, end: 20060209
  3. AREDIA [Suspect]
     Dosage: 90 MG, UNK
     Dates: start: 20050701, end: 20050901
  4. AREDIA [Suspect]
     Dosage: 90 MG, UNK
     Dates: start: 20051001, end: 20060201
  5. NSAID'S [Suspect]
  6. ADRIAMYCIN PFS [Concomitant]
     Dosage: UNK
     Dates: start: 20040901, end: 20050201
  7. CYTOXAN [Concomitant]
     Dosage: UNK
     Dates: start: 20040901, end: 20050201
  8. FLUOROURACIL [Concomitant]
     Dosage: UNK
     Dates: start: 20040901, end: 20050201
  9. ALOXI [Concomitant]
  10. DECADRON [Concomitant]
  11. ATIVAN [Concomitant]
  12. LORCET-HD [Concomitant]
  13. OXYCONTIN [Concomitant]
     Indication: BACK PAIN
  14. PROTONIX [Concomitant]
  15. ELAVIL [Concomitant]
  16. LIPITOR [Concomitant]
  17. FLEXERIL [Concomitant]
  18. DIOVAN [Concomitant]
  19. HEPARIN [Concomitant]
  20. CITALOPRAM HYDROBROMIDE [Concomitant]
     Dosage: 10 MG, QHS
     Route: 048
     Dates: start: 20050201
  21. WARFARIN SODIUM [Concomitant]
  22. CYCLOBENZAPRINE [Concomitant]
  23. COLACE [Concomitant]
  24. MAXZIDE [Concomitant]
     Dosage: UNK, QD
     Route: 048
     Dates: start: 20041101
  25. ARIMIDEX [Concomitant]
     Dosage: 1 MG QD
     Route: 048
     Dates: start: 20050201
  26. CHANTIX [Concomitant]
  27. TRIAMTERENE AND HYDROCHLOROTHIAZID ^HARRIS^ [Concomitant]
  28. ZOLOFT [Concomitant]
  29. HYDROCODONE [Concomitant]
  30. MICARDIS [Concomitant]
  31. PRILOSEC [Concomitant]
  32. CENTRUM SILVER [Concomitant]
  33. IRON [Concomitant]
  34. VITAMIN A [Concomitant]
  35. VITAMIN E [Concomitant]
  36. AMITRIPTYLINE HCL [Concomitant]
  37. ALBUTEROL [Concomitant]
  38. AZITHROMYCIN [Concomitant]
  39. ROCEPHIN [Concomitant]
  40. CELEXA [Concomitant]
  41. LACTULOSE [Concomitant]
  42. PROCRIT                            /00909301/ [Concomitant]
  43. ULTRAM [Concomitant]
  44. ZANTAC [Concomitant]
  45. AMBIEN [Concomitant]
  46. MEGACE [Concomitant]
  47. MEDROL [Concomitant]

REACTIONS (75)
  - ABDOMINAL PAIN UPPER [None]
  - ANAEMIA [None]
  - ANXIETY [None]
  - BACK PAIN [None]
  - BILIARY COLIC [None]
  - BLOOD CREATININE INCREASED [None]
  - BONE DISORDER [None]
  - BONE LESION [None]
  - BONE SCAN ABNORMAL [None]
  - BRONCHITIS [None]
  - CENTRAL VENOUS CATHETER REMOVAL [None]
  - CERVICAL SPINAL STENOSIS [None]
  - CHEST PAIN [None]
  - CHOLELITHIASIS [None]
  - COMPRESSION FRACTURE [None]
  - COMPUTERISED TOMOGRAM ABNORMAL [None]
  - CONSTIPATION [None]
  - COUGH [None]
  - DEPRESSION [None]
  - DISABILITY [None]
  - DIZZINESS [None]
  - FALL [None]
  - FATIGUE [None]
  - FEBRILE NEUTROPENIA [None]
  - FOOT FRACTURE [None]
  - GAIT DISTURBANCE [None]
  - GASTROOESOPHAGEAL REFLUX DISEASE [None]
  - GINGIVAL ATROPHY [None]
  - GINGIVAL ULCERATION [None]
  - GLOMERULAR FILTRATION RATE DECREASED [None]
  - HAEMOPTYSIS [None]
  - HAEMORRHOIDS [None]
  - HEADACHE [None]
  - HYPERLIPIDAEMIA [None]
  - HYPERREFLEXIA [None]
  - HYPONATRAEMIA [None]
  - IMPAIRED HEALING [None]
  - INJURY [None]
  - INSOMNIA [None]
  - INTERVERTEBRAL DISC PROTRUSION [None]
  - KYPHOSIS [None]
  - LHERMITTE'S SIGN [None]
  - LUNG DISORDER [None]
  - LUNG HYPERINFLATION [None]
  - LUNG NEOPLASM [None]
  - MALIGNANT NEOPLASM PROGRESSION [None]
  - MUSCLE SPASMS [None]
  - NAUSEA [None]
  - NEPHROSCLEROSIS [None]
  - NUCLEAR MAGNETIC RESONANCE IMAGING ABNORMAL [None]
  - ORAL DISORDER [None]
  - ORAL INFECTION [None]
  - ORAL MUCOSAL EXFOLIATION [None]
  - OSTEOARTHRITIS [None]
  - OSTEONECROSIS [None]
  - OSTEOPENIA [None]
  - OSTEOPOROSIS [None]
  - PAIN [None]
  - PAIN IN JAW [None]
  - PYREXIA [None]
  - RENAL FAILURE CHRONIC [None]
  - SINUSITIS [None]
  - SLEEP APNOEA SYNDROME [None]
  - SPINAL OSTEOARTHRITIS [None]
  - SPINAL X-RAY ABNORMAL [None]
  - SPUTUM DISCOLOURED [None]
  - SYNCOPE [None]
  - TANDEM GAIT TEST ABNORMAL [None]
  - TONGUE ULCERATION [None]
  - TOOTH DISORDER [None]
  - TOOTH EXTRACTION [None]
  - TOTAL LUNG CAPACITY DECREASED [None]
  - VERTEBRAL COLUMN MASS [None]
  - VISION BLURRED [None]
  - WEIGHT DECREASED [None]
